FAERS Safety Report 18018019 (Version 1)
Quarter: 2020Q3

REPORT INFORMATION
  Report Type: Other
  Country: FR (occurrence: FR)
  Receive Date: 20200714
  Receipt Date: 20200714
  Transmission Date: 20201103
  Serious: Yes (Hospitalization)
  Sender: FDA-Public Use
  Company Number: FR-CADILA HEALTHCARE LIMITED-FR-ZYDUS-050063

PATIENT

DRUGS (5)
  1. LOXAPAC [LOXAPINE] [Suspect]
     Active Substance: LOXAPINE
     Indication: BIPOLAR DISORDER
     Dosage: 1 DOSAGE FORM, QD
     Route: 048
  2. ZOPICLONE [Concomitant]
     Active Substance: ZOPICLONE
     Indication: PRODUCT USED FOR UNKNOWN INDICATION
     Dosage: UNK
     Route: 048
  3. RISPERIDONE. [Suspect]
     Active Substance: RISPERIDONE
     Indication: BIPOLAR DISORDER
     Dosage: 2 MILLIGRAM, QD
     Route: 048
  4. KETOPROFENE [KETOPROFEN] [Concomitant]
     Active Substance: KETOPROFEN
     Indication: PRODUCT USED FOR UNKNOWN INDICATION
     Dosage: UNK
     Route: 048
  5. LEPTICUR [Concomitant]
     Active Substance: TROPATEPINE HYDROCHLORIDE
     Indication: PRODUCT USED FOR UNKNOWN INDICATION
     Dosage: UNK
     Route: 048
     Dates: start: 20191207, end: 20191208

REACTIONS (1)
  - Restless legs syndrome [Not Recovered/Not Resolved]

NARRATIVE: CASE EVENT DATE: 201912
